FAERS Safety Report 9417431 (Version 1)
Quarter: 2013Q3

REPORT INFORMATION
  Report Type: Spontaneous
  Country: US (occurrence: US)
  Receive Date: 20130724
  Receipt Date: 20130724
  Transmission Date: 20140515
  Serious: No
  Sender: FDA-Public Use
  Company Number: US-MYLANLABS-2013S1011166

PATIENT
  Age: 69 Year
  Sex: Female
  Weight: 54.43 kg

DRUGS (6)
  1. CLONIDINE TRANSDERMAL SYSTEM USP [Suspect]
     Indication: BLOOD PRESSURE INCREASED
     Dosage: QW
     Route: 062
     Dates: start: 20130418, end: 20130517
  2. CLONIDINE TRANSDERMAL SYSTEM USP [Suspect]
     Indication: BLOOD PRESSURE INCREASED
     Dosage: QW
     Route: 062
     Dates: start: 20130517
  3. CLONIDINE HCL [Concomitant]
     Indication: BLOOD PRESSURE INCREASED
     Route: 048
  4. BENAZEPRIL [Concomitant]
     Indication: BLOOD PRESSURE
  5. AMLODIPINE [Concomitant]
     Indication: BLOOD PRESSURE
  6. METOPROLOL [Concomitant]

REACTIONS (2)
  - Drug effect decreased [Recovered/Resolved]
  - Blood pressure increased [Recovered/Resolved]
